FAERS Safety Report 7656409-6 (Version None)
Quarter: 2011Q3

REPORT INFORMATION
  Report Type: 
  Country: None (occurrence: None)
  Receive Date: 20110804
  Receipt Date: 20110530
  Transmission Date: 20111222
  Serious: Yes (Hospitalization)
  Sender: FDA-Public Use
  Company Number: JP-GLAXOSMITHKLINE-B0723601A

PATIENT
  Sex: Male

DRUGS (6)
  1. PAXIL [Suspect]
     Indication: PRODUCT USED FOR UNKNOWN INDICATION
     Dosage: 10MG PER DAY
     Route: 048
     Dates: start: 20110513, end: 20110524
  2. PLAVIX [Concomitant]
     Dosage: 75MG PER DAY
     Route: 048
     Dates: start: 20070420
  3. VALPROATE SODIUM [Concomitant]
     Dosage: 600MG PER DAY
     Route: 048
     Dates: start: 20071207
  4. AMLODIPINE [Concomitant]
     Dosage: 5MG PER DAY
     Route: 048
     Dates: start: 20051007
  5. OLMESARTAN MEDOXOMIL [Concomitant]
     Dosage: 40MG PER DAY
     Route: 048
     Dates: start: 20050909
  6. ARICEPT [Concomitant]
     Dosage: 5MG PER DAY
     Route: 048
     Dates: start: 20070415

REACTIONS (3)
  - HYPONATRAEMIA [None]
  - LOSS OF CONSCIOUSNESS [None]
  - DEHYDRATION [None]
